FAERS Safety Report 9182028 (Version 1)
Quarter: 2013Q1

REPORT INFORMATION
  Report Type: Spontaneous
  Country: US (occurrence: None)
  Receive Date: 20120625
  Receipt Date: 20120625
  Transmission Date: 20140127
  Serious: Yes (Other)
  Sender: FDA-Public Use
  Company Number: FK201102709

PATIENT
  Age: 63 Year
  Sex: Female
  Weight: 82.83 kg

DRUGS (2)
  1. SENSORCAINE [Suspect]
     Indication: SPINAL ANAESTHESIA
  2. DEXTROSE 8.25% [Concomitant]

REACTIONS (1)
  - Drug ineffective [None]
